FAERS Safety Report 8981527 (Version 1)
Quarter: 2012Q4

REPORT INFORMATION
  Report Type: 
  Country: PH (occurrence: PH)
  Receive Date: 20121221
  Receipt Date: 20121221
  Transmission Date: 20130627
  Serious: Yes (Other)
  Sender: FDA-Public Use
  Company Number: PH-JNJFOC-20121207402

PATIENT
  Age: 36 Year
  Sex: Male

DRUGS (3)
  1. INVEGA SUSTENNA [Suspect]
     Indication: SCHIZOPHRENIA
     Route: 030
  2. OLANZAPINE [Concomitant]
     Route: 048
  3. RISPERIDONE [Concomitant]
     Route: 048

REACTIONS (1)
  - Suicidal ideation [Recovered/Resolved]
